FAERS Safety Report 12882454 (Version 1)
Quarter: 2016Q4

REPORT INFORMATION
  Report Type: Spontaneous
  Country: FR (occurrence: FR)
  Receive Date: 20161025
  Receipt Date: 20161025
  Transmission Date: 20170207
  Serious: Yes (Other)
  Sender: FDA-Public Use
  Company Number: FR-MYLANLABS-2016M1045634

PATIENT

DRUGS (2)
  1. GRANULOCYTE MACROPHAGE COLONY STIM FACTOR [Concomitant]
     Active Substance: GRANULOCYTE-MACROPHAGE COLONY-STIMULATING FACTOR
     Indication: PRODUCT USED FOR UNKNOWN INDICATION
     Route: 065
  2. IDARUBICIN [Suspect]
     Active Substance: IDARUBICIN
     Indication: GLIOBLASTOMA
     Dosage: 22MG OVER 30 MINUTES
     Route: 013

REACTIONS (8)
  - Leukopenia [Unknown]
  - Thrombocytopenia [Unknown]
  - Pupils unequal [Unknown]
  - Hemiparesis [Unknown]
  - Concomitant disease aggravated [Unknown]
  - Cognitive disorder [Unknown]
  - Neutropenia [Unknown]
  - Anaemia [Unknown]
